FAERS Safety Report 9276675 (Version 2)
Quarter: 2013Q2

REPORT INFORMATION
  Report Type: Spontaneous
  Country: US (occurrence: US)
  Receive Date: 20130507
  Receipt Date: 20130620
  Transmission Date: 20140414
  Serious: Yes (Other)
  Sender: FDA-Public Use
  Company Number: PHEH2013US009907

PATIENT
  Age: 44 Year
  Sex: Male
  Weight: 107 kg

DRUGS (8)
  1. GILENYA [Suspect]
     Indication: MULTIPLE SCLEROSIS
     Dosage: 0.5 MG, QD
     Route: 048
     Dates: start: 2011
  2. MELOXICAM [Concomitant]
     Dosage: 15 MG, UNK
  3. NEVANAC [Concomitant]
     Dosage: 0.1 %, UNK
  4. SERTRALINE [Concomitant]
     Dosage: 50 MG, QD
     Route: 048
  5. ALPRAZOLAM [Concomitant]
     Indication: ANXIETY DISORDER
     Dosage: 0.5 MG, QD
     Route: 048
  6. DUREZOL [Concomitant]
     Dosage: 0.05 %, UNK
  7. DIMETHYL FUMARATE [Concomitant]
     Dosage: 120 MG, UNK
     Route: 048
  8. DIMETHYL FUMARATE [Concomitant]
     Dosage: 240 MG, UNK
     Route: 048

REACTIONS (7)
  - Glaucoma [Recovered/Resolved]
  - Optic neuritis [Unknown]
  - Cystoid macular oedema [Recovered/Resolved]
  - Visual impairment [Not Recovered/Not Resolved]
  - Diplopia [Recovering/Resolving]
  - Strabismus [Unknown]
  - Nasal polyps [Unknown]
